FAERS Safety Report 16549291 (Version 6)
Quarter: 2023Q2

REPORT INFORMATION
  Report Type: Report from Study
  Country: JP (occurrence: JP)
  Receive Date: 20190709
  Receipt Date: 20230424
  Transmission Date: 20230722
  Serious: Yes (Hospitalization)
  Sender: FDA-Public Use
  Company Number: PHJP2019JP006227

PATIENT
  Age: 23 Year
  Sex: Female
  Weight: 80.7 kg

DRUGS (17)
  1. ILARIS [Suspect]
     Active Substance: CANAKINUMAB
     Indication: Familial mediterranean fever
     Dosage: 150 MG
     Route: 058
     Dates: start: 20190427, end: 20190427
  2. ILARIS [Suspect]
     Active Substance: CANAKINUMAB
     Dosage: 150 MG
     Route: 058
     Dates: start: 20190527, end: 20190527
  3. ILARIS [Suspect]
     Active Substance: CANAKINUMAB
     Dosage: 300 MG
     Route: 058
     Dates: start: 20190624, end: 20190624
  4. ILARIS [Suspect]
     Active Substance: CANAKINUMAB
     Dosage: 300 MG
     Route: 058
     Dates: start: 20190723, end: 20190723
  5. ILARIS [Suspect]
     Active Substance: CANAKINUMAB
     Dosage: 300 MG
     Route: 058
     Dates: start: 20190819, end: 20190819
  6. BETAMETHASONE DIPROPIONATE [Concomitant]
     Active Substance: BETAMETHASONE DIPROPIONATE
     Indication: Prophylaxis
     Dosage: UNK
     Route: 061
     Dates: start: 20190427, end: 20190501
  7. BETAMETHASONE DIPROPIONATE [Concomitant]
     Active Substance: BETAMETHASONE DIPROPIONATE
     Indication: Rash
     Dosage: UNK
     Route: 061
     Dates: start: 20190525, end: 20190530
  8. BETAMETHASONE DIPROPIONATE [Concomitant]
     Active Substance: BETAMETHASONE DIPROPIONATE
     Dosage: UNK
     Route: 061
     Dates: start: 20190622
  9. OLOPATADINE HYDROCHLORIDE [Concomitant]
     Active Substance: OLOPATADINE HYDROCHLORIDE
     Indication: Prophylaxis
     Dosage: UNK
     Route: 048
     Dates: start: 20190427, end: 20190501
  10. OLOPATADINE HYDROCHLORIDE [Concomitant]
     Active Substance: OLOPATADINE HYDROCHLORIDE
     Indication: Rash
     Dosage: UNK
     Route: 048
     Dates: start: 20190530, end: 20190530
  11. OLOPATADINE HYDROCHLORIDE [Concomitant]
     Active Substance: OLOPATADINE HYDROCHLORIDE
     Dosage: UNK
     Route: 048
     Dates: start: 20190622
  12. COLCHICINE [Concomitant]
     Active Substance: COLCHICINE
     Indication: Familial mediterranean fever
     Dosage: 0.5 MG
     Route: 048
  13. COLCHICINE [Concomitant]
     Active Substance: COLCHICINE
     Dosage: 1 MG
     Route: 048
     Dates: start: 20190218, end: 20190329
  14. COLCHICINE [Concomitant]
     Active Substance: COLCHICINE
     Dosage: 1.5 MG
     Route: 048
     Dates: start: 20190330, end: 20190413
  15. COLCHICINE [Concomitant]
     Active Substance: COLCHICINE
     Dosage: 2.5 MG
     Route: 048
     Dates: start: 20190414, end: 20190906
  16. TRAMCET [Concomitant]
     Active Substance: ACETAMINOPHEN\TRAMADOL
     Indication: Familial mediterranean fever
     Dosage: UNK
     Route: 048
  17. TRAMADOL [Concomitant]
     Active Substance: TRAMADOL
     Indication: Familial mediterranean fever
     Dosage: UNK
     Route: 048

REACTIONS (13)
  - Anaphylactic shock [Recovered/Resolved]
  - Dyspnoea [Recovering/Resolving]
  - Rash [Recovering/Resolving]
  - Abdominal pain [Recovered/Resolved]
  - Familial mediterranean fever [Unknown]
  - Back pain [Recovered/Resolved]
  - Disease recurrence [Unknown]
  - Abdominal pain [Recovered/Resolved]
  - Rash [Recovered/Resolved]
  - Rash [Recovered/Resolved]
  - Diarrhoea [Recovering/Resolving]
  - Pyrexia [Recovered/Resolved]
  - Therapeutic response decreased [Recovering/Resolving]

NARRATIVE: CASE EVENT DATE: 20190427
